FAERS Safety Report 7959457-1 (Version None)
Quarter: 2011Q4

REPORT INFORMATION
  Report Type: 
  Country: None (occurrence: None)
  Receive Date: 20111206
  Receipt Date: 20111202
  Transmission Date: 20120403
  Serious: No
  Sender: FDA-Public Use
  Company Number: US-PFIZER INC-2011295040

PATIENT
  Sex: Female
  Weight: 58.957 kg

DRUGS (2)
  1. PREMARIN [Suspect]
     Indication: HEREDITARY DISORDER
     Dosage: 0.5 MG, 2X/WEEK
     Route: 067
     Dates: start: 20030101, end: 20111130
  2. PREMARIN [Suspect]
     Indication: OFF LABEL USE

REACTIONS (1)
  - UTERINE SPASM [None]
